FAERS Safety Report 13950811 (Version 1)
Quarter: 2017Q3

REPORT INFORMATION
  Report Type: Spontaneous
  Country: US (occurrence: US)
  Receive Date: 20170908
  Receipt Date: 20170908
  Transmission Date: 20171128
  Serious: Yes (Hospitalization, Other)
  Sender: FDA-Public Use
  Company Number: US-ROCHE-1131086

PATIENT
  Sex: Male

DRUGS (79)
  1. CYTOXAN [Concomitant]
     Active Substance: CYCLOPHOSPHAMIDE
     Route: 065
     Dates: start: 19990430
  2. TYLENOL [Concomitant]
     Active Substance: ACETAMINOPHEN
     Route: 065
     Dates: start: 19990407
  3. FILGRASTIM [Concomitant]
     Active Substance: FILGRASTIM
     Route: 065
     Dates: start: 19990117
  4. FILGRASTIM [Concomitant]
     Active Substance: FILGRASTIM
     Route: 065
     Dates: start: 19990118
  5. FILGRASTIM [Concomitant]
     Active Substance: FILGRASTIM
     Route: 065
     Dates: start: 19990303
  6. FILGRASTIM [Concomitant]
     Active Substance: FILGRASTIM
     Route: 065
     Dates: start: 19990417
  7. EPOGEN [Concomitant]
     Active Substance: ERYTHROPOIETIN
     Dosage: 40000 UNITS
     Route: 065
     Dates: start: 19990309
  8. EPOGEN [Concomitant]
     Active Substance: ERYTHROPOIETIN
     Dosage: 40000 UNITS
     Route: 065
     Dates: start: 19990407
  9. BENADRYL [Concomitant]
     Active Substance: DIPHENHYDRAMINE HYDROCHLORIDE
     Route: 042
     Dates: start: 19990127
  10. BENADRYL [Concomitant]
     Active Substance: DIPHENHYDRAMINE HYDROCHLORIDE
     Route: 065
     Dates: start: 19990217
  11. TYLENOL [Concomitant]
     Active Substance: ACETAMINOPHEN
     Route: 065
     Dates: start: 19990113
  12. FILGRASTIM [Concomitant]
     Active Substance: FILGRASTIM
     Route: 065
     Dates: start: 19990205
  13. FILGRASTIM [Concomitant]
     Active Substance: FILGRASTIM
     Route: 065
     Dates: start: 19990206
  14. FILGRASTIM [Concomitant]
     Active Substance: FILGRASTIM
     Route: 065
     Dates: start: 19990327
  15. FILGRASTIM [Concomitant]
     Active Substance: FILGRASTIM
     Route: 065
     Dates: start: 19990414
  16. FILGRASTIM [Concomitant]
     Active Substance: FILGRASTIM
     Route: 065
     Dates: start: 19990421
  17. FILGRASTIM [Concomitant]
     Active Substance: FILGRASTIM
     Route: 065
     Dates: start: 19990510
  18. RITUXAN [Suspect]
     Active Substance: RITUXIMAB
     Route: 065
     Dates: start: 19990217
  19. RITUXAN [Suspect]
     Active Substance: RITUXIMAB
     Route: 065
     Dates: start: 20001109
  20. CYTOXAN [Concomitant]
     Active Substance: CYCLOPHOSPHAMIDE
     Route: 065
     Dates: start: 19990219
  21. BENADRYL [Concomitant]
     Active Substance: DIPHENHYDRAMINE HYDROCHLORIDE
     Route: 065
     Dates: start: 20001003
  22. TYLENOL [Concomitant]
     Active Substance: ACETAMINOPHEN
     Route: 065
     Dates: start: 19990217
  23. TYLENOL [Concomitant]
     Active Substance: ACETAMINOPHEN
     Route: 065
     Dates: start: 19990428
  24. VINCRISTINE [Concomitant]
     Active Substance: VINCRISTINE
     Route: 065
     Dates: start: 19990106
  25. FILGRASTIM [Concomitant]
     Active Substance: FILGRASTIM
     Route: 065
     Dates: start: 19990116
  26. FILGRASTIM [Concomitant]
     Active Substance: FILGRASTIM
     Route: 065
     Dates: start: 19990207
  27. FILGRASTIM [Concomitant]
     Active Substance: FILGRASTIM
     Route: 065
     Dates: start: 19990210
  28. RITUXAN [Suspect]
     Active Substance: RITUXIMAB
     Route: 065
     Dates: start: 20001003
  29. CYTOXAN [Concomitant]
     Active Substance: CYCLOPHOSPHAMIDE
     Route: 065
     Dates: start: 19990129
  30. BENADRYL [Concomitant]
     Active Substance: DIPHENHYDRAMINE HYDROCHLORIDE
     Route: 065
     Dates: start: 20001111
  31. VINCRISTINE [Concomitant]
     Active Substance: VINCRISTINE
     Route: 065
     Dates: start: 19990409
  32. FILGRASTIM [Concomitant]
     Active Substance: FILGRASTIM
     Route: 065
     Dates: start: 19990320
  33. PREDNISONE. [Concomitant]
     Active Substance: PREDNISONE
  34. EPOGEN [Concomitant]
     Active Substance: ERYTHROPOIETIN
     Dosage: 40000 UNITS
     Route: 065
     Dates: start: 19990414
  35. RITUXAN [Suspect]
     Active Substance: RITUXIMAB
     Indication: LYMPHOMA
     Route: 065
     Dates: start: 19990113
  36. CYTOXAN [Concomitant]
     Active Substance: CYCLOPHOSPHAMIDE
     Route: 065
     Dates: start: 19990409
  37. VINCRISTINE [Concomitant]
     Active Substance: VINCRISTINE
     Route: 065
     Dates: start: 19990219
  38. FILGRASTIM [Concomitant]
     Active Substance: FILGRASTIM
     Route: 065
     Dates: start: 19990119
  39. FILGRASTIM [Concomitant]
     Active Substance: FILGRASTIM
     Route: 065
     Dates: start: 19990228
  40. FILGRASTIM [Concomitant]
     Active Substance: FILGRASTIM
     Route: 065
     Dates: start: 19990301
  41. FILGRASTIM [Concomitant]
     Active Substance: FILGRASTIM
     Route: 065
     Dates: start: 19990420
  42. FILGRASTIM [Concomitant]
     Active Substance: FILGRASTIM
     Route: 065
     Dates: start: 19990508
  43. FILGRASTIM [Concomitant]
     Active Substance: FILGRASTIM
     Route: 065
     Dates: start: 19990509
  44. ADRIA [Concomitant]
     Dosage: 100/200
     Route: 065
     Dates: start: 19990129
  45. ADRIA [Concomitant]
     Dosage: 100/300
     Route: 065
     Dates: start: 19990219
  46. EPOGEN [Concomitant]
     Active Substance: ERYTHROPOIETIN
     Dosage: 40000 UNITS
     Route: 065
     Dates: start: 19990422
  47. EPOGEN [Concomitant]
     Active Substance: ERYTHROPOIETIN
     Dosage: 40000 UNITS
     Route: 065
     Dates: start: 19990430
  48. FILGRASTIM [Concomitant]
     Active Substance: FILGRASTIM
     Route: 065
     Dates: start: 19990209
  49. FILGRASTIM [Concomitant]
     Active Substance: FILGRASTIM
     Route: 065
     Dates: start: 19990227
  50. FILGRASTIM [Concomitant]
     Active Substance: FILGRASTIM
     Route: 065
     Dates: start: 19990418
  51. ADRIA [Concomitant]
     Route: 065
     Dates: start: 19990106
  52. ADRIA [Concomitant]
     Dosage: 100/400
     Route: 065
     Dates: start: 19990316
  53. EPOGEN [Concomitant]
     Active Substance: ERYTHROPOIETIN
     Dosage: 40000 UNITS
     Route: 065
     Dates: start: 19990323
  54. EPOGEN [Concomitant]
     Active Substance: ERYTHROPOIETIN
     Dosage: 40000 UNITS
     Route: 065
     Dates: start: 19990507
  55. LASIX [Concomitant]
     Active Substance: FUROSEMIDE
     Route: 065
  56. RITUXAN [Suspect]
     Active Substance: RITUXIMAB
     Route: 065
     Dates: start: 19990127
  57. RITUXAN [Suspect]
     Active Substance: RITUXIMAB
     Route: 065
     Dates: start: 19990407
  58. RITUXAN [Suspect]
     Active Substance: RITUXIMAB
     Route: 065
     Dates: start: 19990428
  59. CYTOXAN [Concomitant]
     Active Substance: CYCLOPHOSPHAMIDE
     Route: 065
     Dates: start: 19990106
  60. CYTOXAN [Concomitant]
     Active Substance: CYCLOPHOSPHAMIDE
     Route: 065
     Dates: start: 19990316
  61. TYLENOL [Concomitant]
     Active Substance: ACETAMINOPHEN
     Route: 048
     Dates: start: 19990127
  62. TYLENOL [Concomitant]
     Active Substance: ACETAMINOPHEN
     Route: 065
     Dates: start: 19990312
  63. VINCRISTINE [Concomitant]
     Active Substance: VINCRISTINE
     Route: 065
     Dates: start: 19990129
  64. FILGRASTIM [Concomitant]
     Active Substance: FILGRASTIM
     Route: 065
     Dates: start: 19990208
  65. FILGRASTIM [Concomitant]
     Active Substance: FILGRASTIM
     Route: 065
     Dates: start: 19990302
  66. FILGRASTIM [Concomitant]
     Active Substance: FILGRASTIM
     Route: 065
     Dates: start: 19990328
  67. FILGRASTIM [Concomitant]
     Active Substance: FILGRASTIM
     Route: 065
     Dates: start: 19990507
  68. RITUXAN [Suspect]
     Active Substance: RITUXIMAB
     Route: 065
     Dates: start: 19990312
  69. BENADRYL [Concomitant]
     Active Substance: DIPHENHYDRAMINE HYDROCHLORIDE
     Route: 065
     Dates: start: 19990113
  70. BENADRYL [Concomitant]
     Active Substance: DIPHENHYDRAMINE HYDROCHLORIDE
     Route: 065
     Dates: start: 19990312
  71. BENADRYL [Concomitant]
     Active Substance: DIPHENHYDRAMINE HYDROCHLORIDE
     Route: 065
     Dates: start: 19990407
  72. BENADRYL [Concomitant]
     Active Substance: DIPHENHYDRAMINE HYDROCHLORIDE
     Route: 065
     Dates: start: 19990428
  73. VINCRISTINE [Concomitant]
     Active Substance: VINCRISTINE
     Route: 065
     Dates: start: 19990316
  74. VINCRISTINE [Concomitant]
     Active Substance: VINCRISTINE
     Route: 065
     Dates: start: 19990430
  75. FILGRASTIM [Concomitant]
     Active Substance: FILGRASTIM
     Route: 065
     Dates: start: 19990419
  76. ADRIA [Concomitant]
     Dosage: 100/500
     Route: 065
     Dates: start: 19990409
  77. ADRIA [Concomitant]
     Dosage: 100/600
     Route: 065
     Dates: start: 19990430
  78. EPOGEN [Concomitant]
     Active Substance: ERYTHROPOIETIN
     Dosage: 40000 UNITS
     Route: 065
     Dates: start: 19990302
  79. EPOGEN [Concomitant]
     Active Substance: ERYTHROPOIETIN
     Dosage: 40000 UNITS
     Route: 065
     Dates: start: 19990330

REACTIONS (8)
  - Anaemia [Unknown]
  - Neutropenia [Unknown]
  - Abdominal discomfort [Unknown]
  - Oedema peripheral [Unknown]
  - Heart rate increased [Unknown]
  - Dyspnoea [Unknown]
  - Pleural effusion [Unknown]
  - Fatigue [Unknown]
